FAERS Safety Report 7827324-X (Version None)
Quarter: 2011Q4

REPORT INFORMATION
  Report Type: 
  Country: None (occurrence: None)
  Receive Date: 20111019
  Receipt Date: 20111019
  Transmission Date: 20120403
  Serious: Yes (Hospitalization)
  Sender: FDA-Public Use
  Company Number: None

PATIENT
  Sex: Male
  Weight: 104.5 kg

DRUGS (6)
  1. DOXORUBICIN HCL [Suspect]
     Dosage: 39 MG
  2. CYCLOPHOSPHAMIDE [Suspect]
     Dosage: 1024 MG
  3. ETOPOSIDE [Suspect]
     Dosage: 471 MG
  4. PROCARBAZINE HYDROCHLORIDE [Suspect]
     Dosage: 1050 MG
  5. VINCRISTINE SULFATE [Suspect]
     Dosage: 2 MG
  6. PREDNISONE [Suspect]
     Dosage: 1120 MG

REACTIONS (14)
  - HYPOXIA [None]
  - URINARY TRACT INFECTION [None]
  - PNEUMONIA [None]
  - MENTAL STATUS CHANGES [None]
  - DECUBITUS ULCER [None]
  - REFUSAL OF TREATMENT BY PATIENT [None]
  - DISORIENTATION [None]
  - NO THERAPEUTIC RESPONSE [None]
  - LUNG CONSOLIDATION [None]
  - PICKWICKIAN SYNDROME [None]
  - CONFUSIONAL STATE [None]
  - RESPIRATORY DISORDER [None]
  - SLEEP APNOEA SYNDROME [None]
  - BLOOD MAGNESIUM DECREASED [None]
